FAERS Safety Report 12064651 (Version 1)
Quarter: 2016Q1

REPORT INFORMATION
  Report Type: Spontaneous
  Country: US (occurrence: US)
  Receive Date: 20160210
  Receipt Date: 20160210
  Transmission Date: 20160526
  Serious: No
  Sender: FDA-Public Use
  Company Number: US-ALLERGAN-1308242US

PATIENT
  Sex: Female

DRUGS (2)
  1. BOTOX COSMETIC [Suspect]
     Active Substance: ONABOTULINUMTOXINA
     Dosage: 24 UNITS, SINGLE
     Route: 030
     Dates: start: 20130514, end: 20130514
  2. BOTOX COSMETIC [Suspect]
     Active Substance: ONABOTULINUMTOXINA
     Indication: MUSCLE DISORDER
     Dosage: 12 UNITS, SINGLE
     Route: 030
     Dates: start: 20130514, end: 20130514

REACTIONS (2)
  - Off label use [Unknown]
  - Drug ineffective [Unknown]
